FAERS Safety Report 6201646-0 (Version None)
Quarter: 2009Q2

REPORT INFORMATION
  Report Type: 
  Country: None (occurrence: None)
  Receive Date: 20090526
  Receipt Date: 20080320
  Transmission Date: 20091009
  Serious: Yes (Other)
  Sender: FDA-Public Use
  Company Number: US-BRISTOL-MYERS SQUIBB COMPANY-14122360

PATIENT
  Sex: Female

DRUGS (1)
  1. BARACLUDE [Suspect]
     Dosage: TAKEN LESS THAN A YEAR; DOSE REDUCED TO 0.5 MG.

REACTIONS (1)
  - LACTIC ACIDOSIS [None]
